FAERS Safety Report 10253398 (Version 2)
Quarter: 2014Q3

REPORT INFORMATION
  Report Type: Spontaneous
  Country: AU (occurrence: AU)
  Receive Date: 20140623
  Receipt Date: 20140825
  Transmission Date: 20150326
  Serious: Yes (Other)
  Sender: FDA-Public Use
  Company Number: AU-NAPPMUNDI-GBR-2014-0018732

PATIENT
  Age: 87 Year
  Sex: Female

DRUGS (4)
  1. OXYCODONE HYDROCHLORIDE. [Suspect]
     Active Substance: OXYCODONE HYDROCHLORIDE
     Indication: NECK PAIN
     Route: 065
  2. CLONIDINE. [Concomitant]
     Active Substance: CLONIDINE
  3. PREGABALIN. [Concomitant]
     Active Substance: PREGABALIN
  4. OXYCODONE HYDROCHLORIDE. [Suspect]
     Active Substance: OXYCODONE HYDROCHLORIDE
     Indication: BACK PAIN

REACTIONS (8)
  - Stress [Recovered/Resolved]
  - Confusional state [Recovered/Resolved]
  - Delirium [Recovered/Resolved]
  - Nausea [Recovered/Resolved]
  - Apparent death [Recovered/Resolved]
  - Pain [Recovered/Resolved]
  - Renal failure acute [Recovered/Resolved]
  - Disorientation [Recovered/Resolved]
